FAERS Safety Report 25908284 (Version 2)
Quarter: 2025Q4

REPORT INFORMATION
  Report Type: Spontaneous
  Country: US (occurrence: US)
  Receive Date: 20251010
  Receipt Date: 20251014
  Transmission Date: 20260119
  Serious: Yes (Other)
  Sender: PFIZER
  Company Number: US-PFIZER INC-202500200592

PATIENT
  Age: 71 Year
  Sex: Male

DRUGS (8)
  1. MEKTOVI [Suspect]
     Active Substance: BINIMETINIB
     Indication: Metastatic malignant melanoma
     Dosage: 5 TABLETS PER DAY, EACH TABLET 15 MG
     Dates: start: 2025
  2. MEKTOVI [Suspect]
     Active Substance: BINIMETINIB
     Dosage: 15 MG TABLET, THREE TABLETS TWICE A DAY/THREE TABLETS IN THE MORNING AND THREE IN THE EVENING
     Route: 048
     Dates: start: 2025
  3. BRAFTOVI [Suspect]
     Active Substance: ENCORAFENIB
     Indication: Metastatic malignant melanoma
     Dosage: 75 MG CAPSULES, TAKES 5 CAPSULES PER DAY
     Dates: start: 2025
  4. BRAFTOVI [Suspect]
     Active Substance: ENCORAFENIB
     Dosage: 75 MG CAPSULE, ONE CAPSULE 5 TIMES A DAY
     Route: 048
     Dates: start: 2025
  5. CELECOXIB [Concomitant]
     Active Substance: CELECOXIB
     Indication: Pain
     Dosage: 200 MG, 2X/DAY
     Dates: start: 2025
  6. CELECOXIB [Concomitant]
     Active Substance: CELECOXIB
     Dosage: CAN TAKE TWICE A DAY, BUT TAKES REALLY AS NEEDED. PROBABLY TAKES IT ONCE A DAY
     Route: 048
     Dates: start: 2025
  7. MEGESTROL ACETATE [Concomitant]
     Active Substance: MEGESTROL ACETATE
     Dosage: 40 MG PER ML, LIQUID SUSPENSION, ONCE A DAY
  8. SERTRALINE HYDROCHLORIDE [Concomitant]
     Active Substance: SERTRALINE HYDROCHLORIDE
     Dosage: 50 MG TABLET, ONCE A DAY
     Route: 048
     Dates: start: 202508

REACTIONS (7)
  - Blindness [Not Recovered/Not Resolved]
  - Cerebrovascular accident [Unknown]
  - Visual acuity reduced [Not Recovered/Not Resolved]
  - Vision blurred [Not Recovered/Not Resolved]
  - Photophobia [Not Recovered/Not Resolved]
  - Body height decreased [Unknown]
  - Off label use [Unknown]

NARRATIVE: CASE EVENT DATE: 20250101
